FAERS Safety Report 6551340-1 (Version None)
Quarter: 2010Q1

REPORT INFORMATION
  Report Type: 
  Country: None (occurrence: None)
  Receive Date: 20100120
  Receipt Date: 20100112
  Transmission Date: 20100710
  Serious: Yes (Hospitalization)
  Sender: FDA-Public Use
  Company Number: 2010SP002445

PATIENT
  Age: 76 Year
  Sex: Female

DRUGS (3)
  1. REBETOL [Suspect]
     Indication: DRUG USE FOR UNKNOWN INDICATION
     Dosage: PO
     Route: 048
     Dates: start: 20090901
  2. PEGASYS [Suspect]
     Indication: DRUG USE FOR UNKNOWN INDICATION
     Dosage: 1 DF; SC
     Route: 058
     Dates: start: 20090901
  3. NEORECORMON (EPOETIN BETA) [Suspect]
     Indication: DRUG USE FOR UNKNOWN INDICATION
     Dosage: 1 DF; ONCE; SC
     Route: 058
     Dates: start: 20090901

REACTIONS (2)
  - LOSS OF CONSCIOUSNESS [None]
  - PULMONARY EMBOLISM [None]
